FAERS Safety Report 4282314-1 (Version None)
Quarter: 2004Q1

REPORT INFORMATION
  Report Type: 
  Country: None (occurrence: None)
  Receive Date: 20040112
  Receipt Date: 20031110
  Transmission Date: 20041129
  Serious: Yes (Death)
  Sender: FDA-Public Use
  Company Number: 351517

PATIENT
  Age: 46 Year
  Sex: Male

DRUGS (1)
  1. ENFUVIRTIDE (ENFUVIRTIDE) 90 MG/ML [Suspect]
     Dosage: SUBCUTANEOUS
     Route: 058

REACTIONS (1)
  - CENTRAL NERVOUS SYSTEM LYMPHOMA [None]
